FAERS Safety Report 8022791-3 (Version None)
Quarter: 2011Q4

REPORT INFORMATION
  Report Type: 
  Country: None (occurrence: None)
  Receive Date: 20111123
  Receipt Date: 20110804
  Transmission Date: 20120403
  Serious: No
  Sender: FDA-Public Use
  Company Number: 337468

PATIENT
  Age: 55 Year
  Sex: Female

DRUGS (1)
  1. VICTOZA [Suspect]
     Indication: DIABETES MELLITUS
     Dosage: 1.8 MG, QD, SUBCUTANEOUS ; SUBCUTANEOUS
     Route: 058
     Dates: start: 20110723, end: 20110723

REACTIONS (2)
  - WEIGHT DECREASED [None]
  - BLOOD GLUCOSE INCREASED [None]
